FAERS Safety Report 17684949 (Version 1)
Quarter: 2020Q2

REPORT INFORMATION
  Report Type: Spontaneous
  Country: US (occurrence: US)
  Receive Date: 20200420
  Receipt Date: 20200420
  Transmission Date: 20200714
  Serious: Yes (Hospitalization, Other)
  Sender: FDA-Public Use
  Company Number: US-PURDUE-USA-2020-0151789

PATIENT
  Sex: Male

DRUGS (9)
  1. VICODIN [Suspect]
     Active Substance: ACETAMINOPHEN\HYDROCODONE BITARTRATE
     Indication: PAIN
     Dosage: UNK
     Route: 065
     Dates: start: 2001
  2. SEROQUEL [Suspect]
     Active Substance: QUETIAPINE FUMARATE
     Indication: PRODUCT USED FOR UNKNOWN INDICATION
     Dosage: UNK
     Route: 065
  3. KLONOPIN [Suspect]
     Active Substance: CLONAZEPAM
     Indication: ANXIETY
     Route: 065
  4. ALCOHOL. [Suspect]
     Active Substance: ALCOHOL
     Indication: PRODUCT USED FOR UNKNOWN INDICATION
     Route: 065
  5. METHADONE [Suspect]
     Active Substance: METHADONE HYDROCHLORIDE
     Indication: PAIN
     Route: 065
  6. PERCOCET                           /00446701/ [Suspect]
     Active Substance: ACETAMINOPHEN\OXYCODONE HYDROCHLORIDE\OXYCODONE TEREPHTHALATE
     Indication: PAIN
     Route: 065
  7. MORPHINE SULFATE (SIMILAR TO NDA 19-516) [Suspect]
     Active Substance: MORPHINE SULFATE
     Indication: PAIN
     Route: 048
  8. AVINZA [Suspect]
     Active Substance: MORPHINE SULFATE
     Indication: PAIN
     Route: 065
  9. FENTANYL CITRATE. [Suspect]
     Active Substance: FENTANYL CITRATE
     Indication: PAIN
     Route: 065

REACTIONS (12)
  - Impaired driving ability [Unknown]
  - Suicide attempt [Unknown]
  - Product prescribing issue [Unknown]
  - Drug dependence [Unknown]
  - Hospitalisation [Unknown]
  - Quality of life decreased [Not Recovered/Not Resolved]
  - Impaired work ability [Not Recovered/Not Resolved]
  - Nerve block [Not Recovered/Not Resolved]
  - Disability [Not Recovered/Not Resolved]
  - Drug withdrawal syndrome [Unknown]
  - Substance abuse [Not Recovered/Not Resolved]
  - Nerve injury [Not Recovered/Not Resolved]

NARRATIVE: CASE EVENT DATE: 2001
